FAERS Safety Report 13004459 (Version 1)
Quarter: 2016Q4

REPORT INFORMATION
  Report Type: Spontaneous
  Country: US (occurrence: US)
  Receive Date: 20161207
  Receipt Date: 20161207
  Transmission Date: 20170207
  Serious: Yes (Disabling)
  Sender: FDA-Public Use
  Company Number: US-009507513-1611USA013659

PATIENT
  Sex: Female
  Weight: 61.68 kg

DRUGS (1)
  1. NEXPLANON [Suspect]
     Active Substance: ETONOGESTREL
     Indication: CONTRACEPTION
     Dosage: LEFT ARM (3 YEARS)
     Route: 059
     Dates: start: 20140924

REACTIONS (3)
  - Polymenorrhoea [Unknown]
  - Menorrhagia [Unknown]
  - Pain in extremity [Unknown]
